FAERS Safety Report 5274531-9 (Version None)
Quarter: 2007Q1

REPORT INFORMATION
  Report Type: 
  Country: None (occurrence: None)
  Receive Date: 20070323
  Receipt Date: 20070312
  Transmission Date: 20070707
  Serious: Yes (Other)
  Sender: FDA-Public Use
  Company Number: US-PFIZER INC-2007019825

PATIENT
  Sex: Female
  Weight: 45.4 kg

DRUGS (3)
  1. CELEBREX [Suspect]
     Indication: OSTEOARTHRITIS
     Dates: start: 20000601, end: 20001201
  2. CELEBREX [Suspect]
     Indication: OSTEOPOROSIS
  3. XANAX [Concomitant]

REACTIONS (4)
  - FIBROMYALGIA [None]
  - MALAISE [None]
  - NEURALGIA [None]
  - PAIN [None]
